FAERS Safety Report 25724637 (Version 3)
Quarter: 2025Q4

REPORT INFORMATION
  Report Type: Spontaneous
  Country: US (occurrence: US)
  Receive Date: 20250826
  Receipt Date: 20251006
  Transmission Date: 20260118
  Serious: No
  Sender: BIOVITRUM
  Company Number: US-BIOVITRUM-2025-US-011457

PATIENT
  Age: 62 Year
  Sex: Male

DRUGS (1)
  1. VONJO [Suspect]
     Active Substance: PACRITINIB
     Indication: Myeloproliferative neoplasm
     Dosage: 2 CAPSULES BY MOUTH TWICE DAILY.
     Route: 048
     Dates: start: 20220709

REACTIONS (5)
  - Platelet count decreased [Recovering/Resolving]
  - Diarrhoea [Not Recovered/Not Resolved]
  - Nausea [Unknown]
  - Off label use [Not Recovered/Not Resolved]
  - Affect lability [Unknown]

NARRATIVE: CASE EVENT DATE: 20220709
